FAERS Safety Report 9200142 (Version 2)
Quarter: 2014Q1

REPORT INFORMATION
  Report Type: Spontaneous
  Country: US (occurrence: US)
  Receive Date: 20130329
  Receipt Date: 20140326
  Transmission Date: 20141002
  Serious: Yes (Hospitalization)
  Sender: FDA-Public Use
  Company Number: US-B.I. PHARMACEUTICALS,INC./RIDGEFIELD-2013-BI-08023BP

PATIENT
  Age: 75 Year
  Sex: Male
  Weight: 104.33 kg

DRUGS (9)
  1. PRADAXA [Suspect]
     Indication: ATRIAL FIBRILLATION
     Dosage: 300 MG
     Route: 065
     Dates: start: 201101, end: 201105
  2. METOPROLOL [Concomitant]
     Route: 065
  3. POTASSIUM [Concomitant]
     Route: 065
  4. FUROSEMIDE [Concomitant]
     Route: 065
  5. SPIRONOLACTONE [Concomitant]
     Route: 065
  6. CRESTOR [Concomitant]
     Route: 065
  7. TEKTURNA [Concomitant]
     Route: 065
  8. METFORMIN [Concomitant]
     Route: 065
  9. JANUVIA [Concomitant]
     Route: 065

REACTIONS (1)
  - Gastrointestinal haemorrhage [Unknown]
